FAERS Safety Report 23726969 (Version 1)
Quarter: 2024Q2

REPORT INFORMATION
  Report Type: Spontaneous
  Country: US (occurrence: US)
  Receive Date: 20240410
  Receipt Date: 20240410
  Transmission Date: 20240716
  Serious: No
  Sender: FDA-Public Use
  Company Number: US-SA-SAC20240404001448

PATIENT
  Sex: Female

DRUGS (13)
  1. DUPIXENT [Suspect]
     Active Substance: DUPILUMAB
     Indication: Idiopathic urticaria
     Dosage: 300 MG, QOW
     Route: 058
  2. AZITHROMYCIN [Concomitant]
     Active Substance: AZITHROMYCIN
  3. BUDESONIDE [Concomitant]
     Active Substance: BUDESONIDE
  4. LISINOPRIL [Concomitant]
     Active Substance: LISINOPRIL
  5. MONTELUKAST [Concomitant]
     Active Substance: MONTELUKAST SODIUM
  6. ONDANSETRON [Concomitant]
     Active Substance: ONDANSETRON
  7. PREDNISONE [Concomitant]
     Active Substance: PREDNISONE
  8. QVAR REDIHALER [Concomitant]
     Active Substance: BECLOMETHASONE DIPROPIONATE
  9. SIMVASTATIN [Concomitant]
     Active Substance: SIMVASTATIN
  10. METHYLPREDNISOLONE [Concomitant]
     Active Substance: METHYLPREDNISOLONE
  11. TEZSPIRE [Concomitant]
     Active Substance: TEZEPELUMAB-EKKO
  12. TEZSPIRE [Concomitant]
     Active Substance: TEZEPELUMAB-EKKO
  13. ONDANSETRON [Concomitant]
     Active Substance: ONDANSETRON

REACTIONS (5)
  - Influenza [Recovered/Resolved]
  - Idiopathic urticaria [Recovered/Resolved]
  - Condition aggravated [Recovered/Resolved]
  - Impaired quality of life [Recovered/Resolved]
  - Product use in unapproved indication [Unknown]
